FAERS Safety Report 17118233 (Version 1)
Quarter: 2019Q4

REPORT INFORMATION
  Report Type: Not Available
  Country: US (occurrence: US)
  Receive Date: 20191205
  Receipt Date: 20191205
  Transmission Date: 20200122
  Serious: Yes (Death)
  Sender: FDA-Public Use
  Company Number: US-NEUROCRINE BIOSCIENCES INC.-2019NBI03694

PATIENT
  Age: 62 Year
  Sex: Female

DRUGS (13)
  1. MVI [Concomitant]
     Active Substance: VITAMINS
  2. CALCIUM CARBONATE. [Concomitant]
     Active Substance: CALCIUM CARBONATE
  3. CLARITIN [Concomitant]
     Active Substance: LORATADINE
  4. PAROXETINE. [Concomitant]
     Active Substance: PAROXETINE
  5. FOSAMAX [Concomitant]
     Active Substance: ALENDRONATE SODIUM
  6. VALPROIC ACID. [Concomitant]
     Active Substance: VALPROIC ACID
  7. CHLORTHALIDONE. [Concomitant]
     Active Substance: CHLORTHALIDONE
  8. VITAMIN D [Concomitant]
     Active Substance: VITAMIN D NOS
  9. INGREZZA [Suspect]
     Active Substance: VALBENAZINE
     Indication: TARDIVE DYSKINESIA
     Route: 048
  10. SIMVASTATIN. [Concomitant]
     Active Substance: SIMVASTATIN
  11. DONEPEZIL. [Concomitant]
     Active Substance: DONEPEZIL
  12. ZANTAC [Concomitant]
     Active Substance: RANITIDINE HYDROCHLORIDE
  13. MELATONIN [Concomitant]
     Active Substance: MELATONIN

REACTIONS (1)
  - Death [Fatal]

NARRATIVE: CASE EVENT DATE: 20191104
